FAERS Safety Report 4913508-7 (Version None)
Quarter: 2006Q1

REPORT INFORMATION
  Report Type: 
  Country: None (occurrence: None)
  Receive Date: 20060210
  Receipt Date: 20060123
  Transmission Date: 20060701
  Serious: Yes (Disabling, Other)
  Sender: FDA-Public Use
  Company Number: 6019998F

PATIENT
  Age: 57 Year
  Weight: 101 kg

DRUGS (2)
  1. NIASPAN [Suspect]
     Dosage: 375 MG QD PO
     Route: 048
     Dates: start: 20050907
  2. NIASPAN [Suspect]
     Dosage: 500 MG QD PO
     Route: 048
     Dates: end: 20050916

REACTIONS (5)
  - ABDOMINAL PAIN [None]
  - ANGINA PECTORIS [None]
  - ASTHENIA [None]
  - DYSPNOEA [None]
  - FLUSHING [None]
